FAERS Safety Report 23143201 (Version 2)
Quarter: 2023Q4

REPORT INFORMATION
  Report Type: Spontaneous
  Country: DE (occurrence: DE)
  Receive Date: 20231103
  Receipt Date: 20231110
  Transmission Date: 20240110
  Serious: Yes (Hospitalization, Other)
  Sender: FDA-Public Use
  Company Number: DE-EXELTIS PHARMACEUTICAL HOLDING, S.L.-2310DE07399

PATIENT
  Sex: Female
  Weight: 62 kg

DRUGS (2)
  1. PROGESTERONE [Suspect]
     Active Substance: PROGESTERONE
     Indication: Menopausal symptoms
     Dosage: 300 MILLIGRAM, QD
     Dates: start: 20230809, end: 20230819
  2. PROGESTERONE [Suspect]
     Active Substance: PROGESTERONE
     Indication: Endometrial hyperplasia

REACTIONS (2)
  - Ileus paralytic [Recovered/Resolved]
  - Off label use [Unknown]
